FAERS Safety Report 18707099 (Version 1)
Quarter: 2021Q1

REPORT INFORMATION
  Report Type: Spontaneous
  Country: IN (occurrence: IN)
  Receive Date: 20210106
  Receipt Date: 20210106
  Transmission Date: 20210419
  Serious: No
  Sender: FDA-Public Use
  Company Number: IN-LUPIN LIMITED-2020-09803

PATIENT
  Age: 26 Year
  Sex: Female

DRUGS (7)
  1. LEVETIRACETAM. [Suspect]
     Active Substance: LEVETIRACETAM
     Dosage: 3750 MILLIGRAM, QD (DOSAGE OF LEVETIRACETAM WAS INCREASED TO 3750 MG PER DAY)
     Route: 065
  2. LEVETIRACETAM. [Suspect]
     Active Substance: LEVETIRACETAM
     Indication: SEIZURE
     Dosage: 1500 MILLIGRAM, QD (AT THE 14TH WEEK)
     Route: 065
  3. LEVETIRACETAM. [Suspect]
     Active Substance: LEVETIRACETAM
     Dosage: UNK (DOSE OF LEVETIRACETAM WAS INCREASED TO 1000MG, THREE TIMES A DAY, IN THE 31ST WEEK)
     Route: 065
  4. LEVETIRACETAM. [Suspect]
     Active Substance: LEVETIRACETAM
     Dosage: 3000 MILLIGRAM, QD (IN THE 38TH WEEK OF PREGNANCY)
     Route: 065
  5. LEVETIRACETAM. [Suspect]
     Active Substance: LEVETIRACETAM
     Dosage: 2000 MILLIGRAM, QD (AT THE 21ST WEEK)
     Route: 065
  6. LEVETIRACETAM. [Suspect]
     Active Substance: LEVETIRACETAM
     Dosage: 2250 MILLIGRAM, QD (AT THE 27TH WEEK)
     Route: 065
  7. LEVETIRACETAM. [Suspect]
     Active Substance: LEVETIRACETAM
     Dosage: 2750 MILLIGRAM, QD (AT THE 32ND WEEK)
     Route: 065

REACTIONS (1)
  - Exposure during pregnancy [Unknown]
